FAERS Safety Report 8802754 (Version 1)
Quarter: 2012Q4

REPORT INFORMATION
  Report Type: 
  Country: FR (occurrence: FR)
  Receive Date: 20120921
  Receipt Date: 20120921
  Transmission Date: 20130627
  Serious: Yes (Hospitalization)
  Sender: FDA-Public Use
  Company Number: FR-009507513-1209FRA006244

PATIENT
  Age: 56 Year
  Sex: Female

DRUGS (2)
  1. EZETROL [Suspect]
  2. KARDEGIC [Suspect]
     Dosage: UNK
     Route: 048

REACTIONS (4)
  - Spontaneous haematoma [Unknown]
  - Gingival bleeding [Unknown]
  - Haemoptysis [Unknown]
  - Thrombocytopenia [Unknown]
